FAERS Safety Report 12124867 (Version 2)
Quarter: 2016Q2

REPORT INFORMATION
  Report Type: Spontaneous
  Country: US (occurrence: US)
  Receive Date: 20160229
  Receipt Date: 20160422
  Transmission Date: 20160815
  Serious: Yes (Hospitalization)
  Sender: FDA-Public Use
  Company Number: US-BEH-2016059192

PATIENT
  Age: 79 Year
  Sex: Female
  Weight: 135 kg

DRUGS (17)
  1. HIZENTRA [Suspect]
     Active Substance: HUMAN IMMUNOGLOBULIN G
     Indication: IMMUNODEFICIENCY COMMON VARIABLE
     Dosage: 2 GM 10 ML VIALS; DISCONTINUED ON: ??-FEB-2016
     Route: 058
     Dates: start: 20131224
  2. XOPENEX [Concomitant]
     Active Substance: LEVALBUTEROL HYDROCHLORIDE
  3. HIZENTRA [Suspect]
     Active Substance: HUMAN IMMUNOGLOBULIN G
     Dosage: 4 GM 20 ML VIALS; DISCONTINUED ON: ??-FEB-2016
     Route: 058
     Dates: start: 20131224
  4. DIPHENHYDRAMINE. [Concomitant]
     Active Substance: DIPHENHYDRAMINE
  5. POTASSIUM [Concomitant]
     Active Substance: POTASSIUM
  6. NASONEX [Concomitant]
     Active Substance: MOMETASONE FUROATE
  7. HIZENTRA [Suspect]
     Active Substance: HUMAN IMMUNOGLOBULIN G
     Dosage: 1 GM 5 ML VIAL; DISCONTINUED ON: ??-FEB-2016
     Route: 058
     Dates: start: 20131224
  8. LIDOCAINE/PRILOCAINE [Concomitant]
  9. LMX [Concomitant]
     Active Substance: LIDOCAINE
  10. PREDNISONE. [Concomitant]
     Active Substance: PREDNISONE
  11. SIMVASTATIN. [Concomitant]
     Active Substance: SIMVASTATIN
  12. CALCIUM [Concomitant]
     Active Substance: CALCIUM
  13. SINGULAIR [Concomitant]
     Active Substance: MONTELUKAST SODIUM
  14. ADVAIR HFA [Concomitant]
     Active Substance: FLUTICASONE PROPIONATE\SALMETEROL XINAFOATE
  15. EPIPEN [Concomitant]
     Active Substance: EPINEPHRINE
  16. FISH OIL [Concomitant]
     Active Substance: FISH OIL
  17. MAGNESIUM [Concomitant]
     Active Substance: MAGNESIUM

REACTIONS (4)
  - Asthenia [Not Recovered/Not Resolved]
  - Haemoglobin decreased [Not Recovered/Not Resolved]
  - Aplastic anaemia [Not Recovered/Not Resolved]
  - Platelet count decreased [Not Recovered/Not Resolved]

NARRATIVE: CASE EVENT DATE: 20160204
